FAERS Safety Report 6092764-9 (Version None)
Quarter: 2009Q1

REPORT INFORMATION
  Report Type: 
  Country: None (occurrence: None)
  Receive Date: 20090225
  Receipt Date: 20090223
  Transmission Date: 20090719
  Serious: Yes (Hospitalization)
  Sender: FDA-Public Use
  Company Number: PHHO2009DE01132

PATIENT
  Sex: Male
  Weight: 91.6 kg

DRUGS (3)
  1. CYCLOSPORINE [Suspect]
     Indication: HEART TRANSPLANT
     Dosage: 87.5 MG, BID
     Route: 048
     Dates: start: 20080426
  2. MYCOPHENOLATE MOFETIL [Suspect]
     Indication: HEART TRANSPLANT
     Dosage: 1500 MG, BID
     Route: 048
     Dates: start: 20080424
  3. PREDNISOLONE [Suspect]
     Indication: HEART TRANSPLANT
     Dosage: UNK
     Route: 048
     Dates: start: 20080426

REACTIONS (4)
  - CHOLECYSTITIS ACUTE [None]
  - EPIGASTRIC DISCOMFORT [None]
  - GASTROOESOPHAGITIS [None]
  - PYREXIA [None]
